FAERS Safety Report 9431306 (Version 4)
Quarter: 2014Q1

REPORT INFORMATION
  Report Type: Spontaneous
  Country: US (occurrence: US)
  Receive Date: 20130730
  Receipt Date: 20140228
  Transmission Date: 20141002
  Serious: Yes (Death, Hospitalization)
  Sender: FDA-Public Use
  Company Number: US-B.I. PHARMACEUTICALS,INC./RIDGEFIELD-2013-BI-22584BP

PATIENT
  Sex: Female
  Weight: 79.38 kg

DRUGS (17)
  1. PRADAXA [Suspect]
     Indication: ATRIAL FIBRILLATION
     Dosage: 150 MG
     Route: 065
     Dates: start: 20110118, end: 20110815
  2. CARISOPRODOL [Concomitant]
     Dosage: 350 MG
     Route: 065
     Dates: start: 2009
  3. DIGOXIN [Concomitant]
     Dosage: 0.125 MG
     Route: 065
     Dates: start: 2008
  4. ENALAPRIL [Concomitant]
     Dosage: 5 MG
     Route: 065
     Dates: start: 2009
  5. GLUCOVANCE [Concomitant]
     Route: 065
     Dates: start: 2009
  6. LASIX [Concomitant]
     Dosage: 80 MG
     Route: 065
     Dates: start: 2008
  7. LIPITOR [Concomitant]
     Dosage: 20 MG
     Route: 065
     Dates: start: 2008
  8. METOPROLOL [Concomitant]
     Dosage: 100 MG
     Route: 065
  9. OMEGA 3 FISH OIL [Concomitant]
     Dosage: 2000 MG
     Route: 048
  10. K DUR [Concomitant]
     Dosage: 10 MEQ
     Route: 065
  11. GLUCOTROL [Concomitant]
     Route: 065
  12. SUCRALFATE [Concomitant]
     Dosage: 3 G
     Route: 065
  13. TANDEM PLUS [Concomitant]
     Route: 065
  14. TYLENOL [Concomitant]
     Route: 065
  15. XANAX [Concomitant]
     Dosage: 0.5 MG
     Route: 065
     Dates: start: 2008
  16. NEXIUM [Concomitant]
     Dosage: 40 MG
     Route: 065
  17. CEFDINIR [Concomitant]
     Dosage: 600 MG
     Route: 048

REACTIONS (6)
  - Gastrointestinal haemorrhage [Fatal]
  - Hyperkalaemia [Fatal]
  - Renal failure [Fatal]
  - Anaemia [Unknown]
  - Urinary tract infection [Unknown]
  - Septic shock [Unknown]
